FAERS Safety Report 9417242 (Version 1)
Quarter: 2013Q3

REPORT INFORMATION
  Report Type: Spontaneous
  Country: US (occurrence: US)
  Receive Date: 20130724
  Receipt Date: 20130724
  Transmission Date: 20140515
  Serious: No
  Sender: FDA-Public Use
  Company Number: US-BAUSCH-BL-2013-002669

PATIENT
  Age: 82 Year
  Sex: Female
  Weight: 59.02 kg

DRUGS (2)
  1. OPCON-A [Suspect]
     Indication: EYE ALLERGY
     Dosage: 1 DROP IN EACH EYE; TWICE DAILY AT 7PM AND 12 AM; OPHTHALMIC
     Route: 047
     Dates: start: 20130505, end: 20130505
  2. PREDNISONE [Concomitant]

REACTIONS (3)
  - Lacrimation increased [Recovered/Resolved]
  - Foreign body sensation in eyes [Recovered/Resolved]
  - Eye disorder [Recovered/Resolved]
